FAERS Safety Report 8345570-6 (Version None)
Quarter: 2012Q2

REPORT INFORMATION
  Report Type: 
  Country: None (occurrence: None)
  Receive Date: 20120508
  Receipt Date: 20110908
  Transmission Date: 20120825
  Serious: No
  Sender: FDA-Public Use
  Company Number: US-BAUSCH-2011BL006103

PATIENT
  Age: 80 Year
  Sex: Female

DRUGS (4)
  1. ACTONEL /USA/ [Concomitant]
     Indication: OSTEOPOROSIS
  2. ALREX [Suspect]
     Indication: LACRIMATION INCREASED
     Route: 047
     Dates: start: 20110801, end: 20110801
  3. XALATAN /SWE/ [Concomitant]
     Indication: OPEN ANGLE GLAUCOMA
     Route: 047
  4. BENICAR /USA/ [Concomitant]
     Indication: HYPERTENSION
     Route: 048

REACTIONS (1)
  - RASH GENERALISED [None]
